FAERS Safety Report 8384524-0 (Version None)
Quarter: 2012Q2

REPORT INFORMATION
  Report Type: 
  Country: None (occurrence: None)
  Receive Date: 20120524
  Receipt Date: 20120522
  Transmission Date: 20120825
  Serious: Yes (Hospitalization)
  Sender: FDA-Public Use
  Company Number: US-GILEAD-2012-0054743

PATIENT
  Sex: Female

DRUGS (4)
  1. LETAIRIS [Suspect]
     Indication: PULMONARY HYPERTENSION
     Dosage: 5 MG, UNK
     Route: 048
     Dates: start: 20091223
  2. LETAIRIS [Suspect]
     Indication: SYSTEMIC LUPUS ERYTHEMATOSUS
  3. LETAIRIS [Suspect]
     Indication: RHEUMATOID ARTHRITIS
  4. LETAIRIS [Suspect]
     Indication: MIXED CONNECTIVE TISSUE DISEASE

REACTIONS (1)
  - PULMONARY EMBOLISM [None]
